FAERS Safety Report 8979167 (Version 1)
Quarter: 2012Q4

REPORT INFORMATION
  Report Type: Report from Study
  Country: US (occurrence: US)
  Receive Date: 20121221
  Receipt Date: 20121221
  Transmission Date: 20130627
  Serious: Yes (Other)
  Sender: FDA-Public Use
  Company Number: US-GLAXOSMITHKLINE-A1006234A

PATIENT

DRUGS (2)
  1. ADVAIR [Suspect]
     Indication: PRODUCT USED FOR UNKNOWN INDICATION
     Route: 065
  2. UNSPECIFIED MEDICATIONS [Concomitant]

REACTIONS (20)
  - Cerebrovascular accident [Unknown]
  - Paralysis [Recovered/Resolved]
  - Dementia [Unknown]
  - Cognitive disorder [Unknown]
  - Adverse event [Unknown]
  - Dizziness [Unknown]
  - Confusional state [Unknown]
  - Asthma [Unknown]
  - Cardiac disorder [Unknown]
  - Hypotension [Unknown]
  - Heart valve incompetence [Unknown]
  - Balance disorder [Unknown]
  - Respiration abnormal [Unknown]
  - Oxygen saturation decreased [Unknown]
  - Headache [Unknown]
  - Miosis [Unknown]
  - Blood pressure increased [Unknown]
  - Dysphemia [Unknown]
  - Speech disorder [Unknown]
  - Memory impairment [Unknown]
